FAERS Safety Report 6518858-9 (Version None)
Quarter: 2009Q4

REPORT INFORMATION
  Report Type: 
  Country: None (occurrence: None)
  Receive Date: 20091228
  Receipt Date: 20091223
  Transmission Date: 20100525
  Serious: Yes (Death)
  Sender: FDA-Public Use
  Company Number: AR-ASTRAZENECA-2009SE33313

PATIENT
  Age: 96 Year
  Sex: Female

DRUGS (1)
  1. DURACAINE HYPERBARIC FENTANYL [Suspect]
     Indication: HIP ARTHROPLASTY
     Route: 037
     Dates: start: 20091221, end: 20091221

REACTIONS (1)
  - DEATH [None]
